FAERS Safety Report 12090457 (Version 1)
Quarter: 2016Q1

REPORT INFORMATION
  Report Type: Spontaneous
  Country: US (occurrence: US)
  Receive Date: 20160218
  Receipt Date: 20160218
  Transmission Date: 20160526
  Serious: No
  Sender: FDA-Public Use
  Company Number: US-BAUSCH-BL-2015-022161

PATIENT
  Sex: Female
  Weight: 54.48 kg

DRUGS (1)
  1. DILTIER [Suspect]
     Active Substance: DILTIAZEM HYDROCHLORIDE
     Indication: PRODUCT USED FOR UNKNOWN INDICATION
     Dates: start: 20150908

REACTIONS (2)
  - Pollakiuria [Unknown]
  - Insomnia [Unknown]
